FAERS Safety Report 24030481 (Version 2)
Quarter: 2024Q3

REPORT INFORMATION
  Report Type: Spontaneous
  Country: US (occurrence: US)
  Receive Date: 20240628
  Receipt Date: 20240906
  Transmission Date: 20241017
  Serious: Yes (Other)
  Sender: DOMPE FARMACEUTICI
  Company Number: US-FARMAPROD-202311-3478

PATIENT
  Sex: Female

DRUGS (31)
  1. OXERVATE [Suspect]
     Active Substance: CENEGERMIN-BKBJ
     Indication: Neurotrophic keratopathy
     Route: 047
     Dates: start: 20231115, end: 202311
  2. OXERVATE [Suspect]
     Active Substance: CENEGERMIN-BKBJ
     Dates: start: 20240226, end: 202404
  3. OXERVATE [Suspect]
     Active Substance: CENEGERMIN-BKBJ
  4. OXERVATE [Suspect]
     Active Substance: CENEGERMIN-BKBJ
  5. OXERVATE [Suspect]
     Active Substance: CENEGERMIN-BKBJ
     Route: 047
     Dates: start: 20240426
  6. OXERVATE [Suspect]
     Active Substance: CENEGERMIN-BKBJ
  7. SULFAMETHOXAZOLE\TRIMETHOPRIM [Concomitant]
     Active Substance: SULFAMETHOXAZOLE\TRIMETHOPRIM
  8. UNSPECIFIED INGREDIENT [Concomitant]
     Active Substance: UNSPECIFIED INGREDIENT
  9. MELATONIN [Concomitant]
     Active Substance: MELATONIN
  10. TUMS [Concomitant]
     Active Substance: CALCIUM CARBONATE
     Dosage: 200(500)MG
  11. MONTELUKAST SODIUM [Concomitant]
     Active Substance: MONTELUKAST\MONTELUKAST SODIUM
  12. DILTIAZEM [Concomitant]
     Active Substance: DILTIAZEM
     Dosage: 12H
  13. PROPAFENONE HCL [Concomitant]
     Active Substance: PROPAFENONE HYDROCHLORIDE
  14. IRON [Concomitant]
     Active Substance: IRON
     Dosage: 325(65) MG
  15. CALCIUM [Concomitant]
     Active Substance: CALCIUM
     Dosage: 500(1250)
  16. ALPRAZOLAM [Concomitant]
     Active Substance: ALPRAZOLAM
  17. ROSUVASTATIN CALCIUM [Concomitant]
     Active Substance: ROSUVASTATIN CALCIUM
  18. AMITRIPTYLINE HYDROCHLORIDE [Concomitant]
     Active Substance: AMITRIPTYLINE HYDROCHLORIDE
  19. POTASSIUM CHLORIDE [Concomitant]
     Active Substance: POTASSIUM CHLORIDE
  20. GABAPENTIN [Concomitant]
     Active Substance: GABAPENTIN
  21. ASPIRIN [Concomitant]
     Active Substance: ASPIRIN
  22. TRAZODONE HCL [Concomitant]
     Active Substance: TRAZODONE HYDROCHLORIDE
  23. FUROSEMIDE [Concomitant]
     Active Substance: FUROSEMIDE
  24. LACTO-PECTIN [Concomitant]
     Dosage: 20 BILLION CELL CAPSULE
  25. VITAMINS [Concomitant]
     Active Substance: VITAMINS
  26. XIIDRA [Concomitant]
     Active Substance: LIFITEGRAST
  27. MAGNESIUM [Concomitant]
     Active Substance: MAGNESIUM
  28. PROBIOTICS NOS [Concomitant]
     Active Substance: PROBIOTICS NOS
     Dosage: 1 BILLION CELL
  29. PANTOPRAZOLE SODIUM [Concomitant]
     Active Substance: PANTOPRAZOLE SODIUM
  30. CLOPIDOGREL [Concomitant]
     Active Substance: CLOPIDOGREL BISULFATE
  31. STELARA [Concomitant]
     Active Substance: USTEKINUMAB
     Dosage: 130MG/26ML VIAL

REACTIONS (5)
  - Surgery [Unknown]
  - Eye pain [Unknown]
  - Vulvovaginal pain [Unknown]
  - Product administration error [Unknown]
  - Product dose omission issue [Unknown]
